FAERS Safety Report 6288553-2 (Version None)
Quarter: 2009Q3

REPORT INFORMATION
  Report Type: 
  Country: None (occurrence: None)
  Receive Date: 20090729
  Receipt Date: 20090723
  Transmission Date: 20100115
  Serious: Yes (Death, Other)
  Sender: FDA-Public Use
  Company Number: JP-GENENTECH-282701

PATIENT
  Sex: Female

DRUGS (14)
  1. MABTHERA [Suspect]
     Indication: PERIPHERAL T-CELL LYMPHOMA UNSPECIFIED
     Dosage: 480 MG, Q4W
     Route: 042
     Dates: start: 20071003
  2. DOXORUBICIN HCL [Suspect]
     Indication: DRUG USE FOR UNKNOWN INDICATION
     Dosage: 50 MG/M2, UNKNOWN
     Route: 065
     Dates: start: 20061002
  3. VINCRISTINE [Suspect]
     Indication: DRUG USE FOR UNKNOWN INDICATION
     Dosage: 1.4 MG/M2, UNKNOWN
     Route: 065
     Dates: start: 20061002
  4. CYCLOPHOSPHAMIDE [Suspect]
     Indication: DRUG USE FOR UNKNOWN INDICATION
     Dosage: 750 MG, UNKNOWN
     Route: 065
     Dates: start: 20061002
  5. PREDNISOLONE [Suspect]
     Indication: DRUG USE FOR UNKNOWN INDICATION
     Dosage: 100 MG, UNKNOWN
     Route: 065
     Dates: start: 20061002
  6. METHYLPREDNISOLONE [Suspect]
     Indication: DRUG USE FOR UNKNOWN INDICATION
     Dosage: 500 MG/KG, UNKNOWN
     Route: 065
     Dates: start: 20070614
  7. VP-16 [Suspect]
     Indication: DRUG USE FOR UNKNOWN INDICATION
     Dosage: 40 MG/M2, UNKNOWN
     Route: 065
     Dates: start: 20070614
  8. ARA-C [Suspect]
     Indication: DRUG USE FOR UNKNOWN INDICATION
     Dosage: UNK UNK, UNKNOWN
     Route: 042
     Dates: start: 20070614
  9. CISPLATIN [Suspect]
     Indication: DRUG USE FOR UNKNOWN INDICATION
     Dosage: 25 MG/M2, UNKNOWN
     Route: 042
     Dates: start: 20070614
  10. HYDRATION (UNK INGREDIENTS) [Concomitant]
     Indication: TUMOUR LYSIS SYNDROME
  11. SODIUM BICARBONATE [Concomitant]
     Indication: TUMOUR LYSIS SYNDROME
  12. FUROSEMIDE [Concomitant]
     Indication: TUMOUR LYSIS SYNDROME
  13. METHYLPREDNISOLONE [Concomitant]
     Indication: TUMOUR LYSIS SYNDROME
  14. ALLOPURINOL [Concomitant]
     Indication: TUMOUR LYSIS SYNDROME

REACTIONS (2)
  - ARRHYTHMIA [None]
  - TUMOUR LYSIS SYNDROME [None]
